FAERS Safety Report 4767386-X (Version None)
Quarter: 2005Q3

REPORT INFORMATION
  Report Type: 
  Country: None (occurrence: None)
  Receive Date: 20050913
  Receipt Date: 20050907
  Transmission Date: 20060218
  Serious: Yes (Hospitalization)
  Sender: FDA-Public Use
  Company Number: AU-MERCK-0509AUS00043

PATIENT
  Age: 87 Year
  Sex: Male
  Weight: 53 kg

DRUGS (5)
  1. ZOCOR [Suspect]
     Indication: METABOLIC DISORDER
     Route: 048
     Dates: end: 20050413
  2. CEPHALEXIN [Suspect]
     Indication: SKIN ULCER
     Route: 048
     Dates: start: 20050323, end: 20050402
  3. ASPIRIN [Suspect]
     Route: 048
     Dates: end: 20050407
  4. SERTRALINE HYDROCHLORIDE [Suspect]
     Indication: DEPRESSION
     Route: 048
     Dates: start: 20040816, end: 20050413
  5. RANITIDINE HYDROCHLORIDE [Concomitant]
     Route: 048

REACTIONS (7)
  - ANAEMIA [None]
  - COAGULOPATHY [None]
  - HAEMATURIA [None]
  - OEDEMA [None]
  - RENAL FAILURE CHRONIC [None]
  - VASCULITIS [None]
  - WOUND HAEMORRHAGE [None]
